FAERS Safety Report 23825291 (Version 1)
Quarter: 2024Q2

REPORT INFORMATION
  Report Type: Spontaneous
  Country: US (occurrence: US)
  Receive Date: 20240507
  Receipt Date: 20240507
  Transmission Date: 20240716
  Serious: Yes (Other)
  Sender: FDA-Public Use
  Company Number: US-MYLANLABS-2024M1040379

PATIENT
  Sex: Male

DRUGS (1)
  1. WIXELA INHUB [Suspect]
     Active Substance: FLUTICASONE PROPIONATE\SALMETEROL XINAFOATE
     Indication: Cough
     Dosage: 250/50 MICROGRAM
     Route: 055
     Dates: start: 2024, end: 2024

REACTIONS (15)
  - Suicidal ideation [Unknown]
  - Pain [Unknown]
  - Therapeutic response changed [Unknown]
  - Pyrexia [Unknown]
  - Product substitution issue [Unknown]
  - Quality of life decreased [Unknown]
  - Somnolence [Unknown]
  - Abdominal discomfort [Unknown]
  - Hyperhidrosis [Unknown]
  - Therapy interrupted [Unknown]
  - Viral infection [Unknown]
  - Muscle spasms [Unknown]
  - Dysphonia [Recovering/Resolving]
  - Product prescribing error [Unknown]
  - Product prescribing issue [Unknown]

NARRATIVE: CASE EVENT DATE: 20240101
